FAERS Safety Report 16198732 (Version 1)
Quarter: 2019Q2

REPORT INFORMATION
  Report Type: Spontaneous
  Country: SE (occurrence: SE)
  Receive Date: 20190415
  Receipt Date: 20190415
  Transmission Date: 20190711
  Serious: Yes (Other)
  Sender: FDA-Public Use
  Company Number: SE-PFIZER INC-2019152798

PATIENT
  Age: 28 Year
  Sex: Female

DRUGS (32)
  1. ILARIS [Suspect]
     Active Substance: CANAKINUMAB
     Indication: STILL^S DISEASE
     Dosage: 300 MG, UNK
     Route: 058
     Dates: start: 20180531, end: 20180621
  2. KINERET [Concomitant]
     Active Substance: ANAKINRA
     Indication: LIVER FUNCTION TEST INCREASED
     Dosage: UNK
     Dates: start: 20180625
  3. ENBREL [Concomitant]
     Active Substance: ETANERCEPT
     Indication: RASH
     Dosage: 50 MG, UNK
     Dates: start: 20180515
  4. HYDROCORTISONE. [Concomitant]
     Active Substance: HYDROCORTISONE
     Indication: LIVER FUNCTION TEST INCREASED
     Dosage: UNK
  5. HYDROCORTISONE. [Concomitant]
     Active Substance: HYDROCORTISONE
     Indication: PYREXIA
  6. OMEPRAZOL [OMEPRAZOLE MAGNESIUM] [Concomitant]
     Dosage: UNK
     Route: 048
  7. PREDNISOLONE. [Concomitant]
     Active Substance: PREDNISOLONE
     Indication: ARTHRALGIA
     Dosage: 80 MG, UNK
     Dates: start: 20180617
  8. ENBREL [Concomitant]
     Active Substance: ETANERCEPT
     Indication: PYREXIA
  9. VANCOSIN [Concomitant]
     Dosage: UNK
     Dates: start: 20180607, end: 20180611
  10. KINERET [Concomitant]
     Active Substance: ANAKINRA
     Indication: RASH
     Dosage: UNK
  11. KALCIPOS-D [Concomitant]
     Active Substance: CALCIUM CARBONATE\CHOLECALCIFEROL
     Dosage: 1 DF, (500 MG/800 IU)
     Route: 048
  12. CICLOSPORIN [Concomitant]
     Active Substance: CYCLOSPORINE
     Dosage: 200 MG, 1X/DAY
  13. ENBREL [Concomitant]
     Active Substance: ETANERCEPT
     Indication: LIVER FUNCTION TEST INCREASED
  14. ROACTEMRA [Concomitant]
     Active Substance: TOCILIZUMAB
     Indication: LIVER FUNCTION TEST INCREASED
     Dosage: 720 MG, UNK
     Route: 042
     Dates: start: 20180502
  15. MERONEM [Concomitant]
     Active Substance: MEROPENEM
     Dosage: UNK
  16. HYDROCORTISONE. [Concomitant]
     Active Substance: HYDROCORTISONE
     Indication: RASH
  17. BACTRIM [Suspect]
     Active Substance: SULFAMETHOXAZOLE\TRIMETHOPRIM
     Indication: PROPHYLAXIS
     Dosage: ONCE EVERY TWO WEEKS
     Route: 048
     Dates: start: 20180418, end: 20180910
  18. CICLOSPORIN [Concomitant]
     Active Substance: CYCLOSPORINE
     Dosage: 50 MG, BID
     Dates: start: 20190304
  19. CANCIDAS [Concomitant]
     Active Substance: CASPOFUNGIN ACETATE
     Dosage: UNK
  20. ACICLOVIR [Concomitant]
     Active Substance: ACYCLOVIR
     Indication: PROPHYLAXIS
     Dosage: UNK
  21. PREDNISOLONE. [Concomitant]
     Active Substance: PREDNISOLONE
     Dosage: 60 MG, UNK
     Dates: start: 20180624
  22. PREDNISOLONE. [Concomitant]
     Active Substance: PREDNISOLONE
     Dosage: 40 -15 MG
     Dates: start: 20180701
  23. SOLU-CORTEF [Concomitant]
     Active Substance: HYDROCORTISONE SODIUM SUCCINATE
     Dosage: 100 MG, UNK
  24. ROACTEMRA [Concomitant]
     Active Substance: TOCILIZUMAB
     Indication: PYREXIA
  25. TAZOCIN [Suspect]
     Active Substance: PIPERACILLIN SODIUM\TAZOBACTAM SODIUM
     Indication: SEPSIS
     Dosage: UNK
     Route: 042
     Dates: start: 20180525, end: 20180605
  26. KINERET [Concomitant]
     Active Substance: ANAKINRA
     Indication: PYREXIA
     Dosage: 100 MG, QD
     Dates: start: 20190304
  27. PREDNISOLON [PREDNISOLONE] [Concomitant]
     Active Substance: PREDNISOLONE
     Dosage: 2.5 UNK, UNK
     Dates: start: 20190304
  28. PREDNISOLON [PREDNISOLONE] [Concomitant]
     Active Substance: PREDNISOLONE
     Dosage: 50 MG, 1X/DAY
     Route: 048
  29. ROACTEMRA [Concomitant]
     Active Substance: TOCILIZUMAB
     Indication: RASH
  30. CLINDAMYCIN. [Concomitant]
     Active Substance: CLINDAMYCIN
     Dosage: UNK
  31. FILGRASTINE [Concomitant]
     Active Substance: FILGRASTIM
     Indication: COLONY STIMULATING FACTOR THERAPY
     Dosage: UNK
  32. SOLU-MEDROL [Concomitant]
     Active Substance: METHYLPREDNISOLONE SODIUM SUCCINATE
     Dosage: UNK

REACTIONS (5)
  - Fungal sepsis [Recovered/Resolved]
  - Arthralgia [Not Recovered/Not Resolved]
  - Anal abscess [Unknown]
  - Neutrophil count decreased [Recovered/Resolved]
  - Pancytopenia [Recovered/Resolved]

NARRATIVE: CASE EVENT DATE: 20180601
